FAERS Safety Report 22538886 (Version 2)
Quarter: 2023Q2

REPORT INFORMATION
  Report Type: Spontaneous
  Country: GB (occurrence: GB)
  Receive Date: 20230609
  Receipt Date: 20230622
  Transmission Date: 20230721
  Serious: Yes (Disabling, Other)
  Sender: FDA-Public Use
  Company Number: None

PATIENT
  Age: 70 Year
  Sex: Female

DRUGS (2)
  1. GABAPENTIN [Suspect]
     Active Substance: GABAPENTIN
     Indication: Product used for unknown indication
     Dosage: 1800 MILLIGRAM, QD
     Route: 048
     Dates: start: 20151201
  2. SERTRALINE [Suspect]
     Active Substance: SERTRALINE HYDROCHLORIDE
     Indication: Product used for unknown indication
     Dosage: UNK, HS (100MG/50MG ALTERNATING EVERY NIGHT)
     Route: 048
     Dates: start: 20160501

REACTIONS (1)
  - Chorea [Not Recovered/Not Resolved]

NARRATIVE: CASE EVENT DATE: 20180511
